FAERS Safety Report 8598508-0 (Version None)
Quarter: 2012Q3

REPORT INFORMATION
  Report Type: 
  Country: None (occurrence: None)
  Receive Date: 20120816
  Receipt Date: 20120802
  Transmission Date: 20120928
  Serious: Yes (Hospitalization, Other)
  Sender: FDA-Public Use
  Company Number: JP-ROCHE-1081334

PATIENT
  Sex: Female
  Weight: 44 kg

DRUGS (6)
  1. OXYCONTIN [Concomitant]
     Indication: PAIN
     Route: 048
     Dates: start: 20110222, end: 20120531
  2. CELEBREX [Concomitant]
     Indication: PAIN
     Dosage: INFUSION RATE DECREASED
     Route: 048
     Dates: start: 20110208
  3. AVASTIN [Suspect]
     Indication: RECTAL CANCER RECURRENT
     Route: 041
     Dates: start: 20120521, end: 20120521
  4. OXALIPLATIN [Concomitant]
     Indication: RECTAL CANCER RECURRENT
     Route: 041
     Dates: start: 20120521
  5. XELODA [Suspect]
     Indication: RECTAL CANCER RECURRENT
     Route: 048
     Dates: start: 20120521, end: 20120523
  6. HOCHUEKKITO [Concomitant]
     Indication: MALAISE
     Route: 048
     Dates: start: 20080519

REACTIONS (5)
  - DERMATITIS [None]
  - CEREBRAL VASOCONSTRICTION [None]
  - VOMITING [None]
  - CEREBRAL INFARCTION [None]
  - CEREBROVASCULAR SPASM [None]
